FAERS Safety Report 7378475-8 (Version None)
Quarter: 2011Q1

REPORT INFORMATION
  Report Type: 
  Country: None (occurrence: None)
  Receive Date: 20110323
  Receipt Date: 20110323
  Transmission Date: 20110831
  Serious: Yes (Life-Threatening, Hospitalization)
  Sender: FDA-Public Use
  Company Number: None

PATIENT
  Age: 60 Year
  Sex: Female

DRUGS (1)
  1. IOHEXOL 350MG/ML [Suspect]
     Indication: COMPUTERISED TOMOGRAM
     Dosage: 100ML ONE TIME IV
     Route: 042
     Dates: start: 20110320, end: 20110320

REACTIONS (5)
  - PULSELESS ELECTRICAL ACTIVITY [None]
  - ANAPHYLACTIC REACTION [None]
  - NAUSEA [None]
  - CARDIAC ARREST [None]
  - VOMITING [None]
